FAERS Safety Report 23125223 (Version 1)
Quarter: 2023Q4

REPORT INFORMATION
  Report Type: Spontaneous
  Country: GB (occurrence: GB)
  Receive Date: 20231030
  Receipt Date: 20231030
  Transmission Date: 20240109
  Serious: Yes (Other)
  Sender: FDA-Public Use
  Company Number: GB-MHRA-MED-202303151113111020-VTCHP

PATIENT
  Age: 59 Year
  Sex: Male
  Weight: 95 kg

DRUGS (3)
  1. CIPROFLOXACIN [Suspect]
     Active Substance: CIPROFLOXACIN
     Indication: Bacterial prostatitis
     Route: 065
     Dates: end: 20230314
  2. FLUOCINOLONE [Suspect]
     Active Substance: FLUOCINOLONE
     Indication: Bacterial prostatitis
     Route: 065
     Dates: end: 20230314
  3. LOSARTAN [Concomitant]
     Active Substance: LOSARTAN
     Indication: Blood pH
     Route: 065

REACTIONS (4)
  - Tendonitis [Not Recovered/Not Resolved]
  - Rotator cuff syndrome [Not Recovered/Not Resolved]
  - Anxiety [Recovering/Resolving]
  - Muscle fatigue [Not Recovered/Not Resolved]

NARRATIVE: CASE EVENT DATE: 20220801
